FAERS Safety Report 5549889-3 (Version None)
Quarter: 2007Q4

REPORT INFORMATION
  Report Type: 
  Country: None (occurrence: None)
  Receive Date: 20071212
  Receipt Date: 20071210
  Transmission Date: 20080405
  Serious: Yes (Hospitalization)
  Sender: FDA-Public Use
  Company Number: FR-BRISTOL-MYERS SQUIBB COMPANY-14009195

PATIENT
  Age: 79 Year
  Sex: Female

DRUGS (12)
  1. COUMADIN [Suspect]
     Dosage: REDUCED AT 3 MG/D
  2. FUROSEMIDE [Suspect]
     Dosage: 1 DOSAGE FORM=20 MG/D, 40 MG/D AT UNSPECIFIED DATES.
  3. CORVASAL [Concomitant]
     Dosage: 3 TABS/D
     Dates: start: 20061228
  4. RAMIPRIL [Concomitant]
     Dates: start: 20061228
  5. EUPANTOL [Concomitant]
     Dosage: 1 TAB/D
     Dates: start: 20061228
  6. ELISOR TABS 20 MG [Concomitant]
     Dosage: 1 TAB/D
     Dates: start: 20061228
  7. STABLON [Concomitant]
     Dosage: 2 TABS/D
     Dates: start: 20061228
  8. ARICEPT [Concomitant]
     Dosage: 1 TAB/D
     Dates: start: 20061228
  9. IMOVANE [Concomitant]
     Dosage: 1 TAB/D
     Dates: start: 20061228
  10. TRANXENE [Concomitant]
     Dates: start: 20061228
  11. EFFERALGAN CODEINE [Concomitant]
     Dates: start: 20061228
  12. TIORFAN [Concomitant]
     Dosage: 3CAPS/D
     Dates: start: 20061228

REACTIONS (6)
  - DIZZINESS [None]
  - FALL [None]
  - GASTROENTERITIS [None]
  - HYPOKALAEMIA [None]
  - INTERNATIONAL NORMALISED RATIO FLUCTUATION [None]
  - TRAUMATIC HAEMATOMA [None]
